FAERS Safety Report 9014690 (Version 1)
Quarter: 2013Q1

REPORT INFORMATION
  Report Type: Spontaneous
  Country: US (occurrence: US)
  Receive Date: 20130115
  Receipt Date: 20130115
  Transmission Date: 20140127
  Serious: Yes (Death)
  Sender: FDA-Public Use
  Company Number: US-ROXANE LABORATORIES, INC.-2013-RO-00051RO

PATIENT
  Age: 55 Year
  Sex: Female

DRUGS (6)
  1. ALPRAZOLAM INTENSOL [ORAL SOLUTION (CONCENTRATE)] 1 MG/ML [Suspect]
  2. LITHIUM CARBONATE [Suspect]
  3. MIDAZOLAM [Suspect]
  4. KEPPRA [Suspect]
  5. MIRTAZAPINE [Suspect]
  6. TEMAZEPAM [Suspect]

REACTIONS (1)
  - Pneumonia [Fatal]
